FAERS Safety Report 12748451 (Version 1)
Quarter: 2016Q3

REPORT INFORMATION
  Report Type: Spontaneous
  Country: US (occurrence: US)
  Receive Date: 20160915
  Receipt Date: 20160915
  Transmission Date: 20161109
  Serious: No
  Sender: FDA-Public Use
  Company Number: US-ASTELLAS-2016US007715

PATIENT
  Sex: Male

DRUGS (2)
  1. XTANDI [Suspect]
     Active Substance: ENZALUTAMIDE
     Indication: PROSTATE CANCER
     Route: 048
     Dates: start: 20160227
  2. XTANDI [Suspect]
     Active Substance: ENZALUTAMIDE
     Route: 048
     Dates: start: 20160423, end: 20160424

REACTIONS (10)
  - Logorrhoea [Unknown]
  - Middle insomnia [Unknown]
  - Peripheral swelling [Unknown]
  - Dysuria [Unknown]
  - Asthenia [Unknown]
  - Dyskinesia [Unknown]
  - Speech disorder [Unknown]
  - Restlessness [Unknown]
  - Confusional state [Unknown]
  - Inappropriate schedule of drug administration [Unknown]
